FAERS Safety Report 23596717 (Version 1)
Quarter: 2024Q1

REPORT INFORMATION
  Report Type: Spontaneous
  Country: US (occurrence: None)
  Receive Date: 20240305
  Receipt Date: 20240305
  Transmission Date: 20240410
  Serious: No
  Sender: FDA-Public Use
  Company Number: None

PATIENT
  Age: 56 Year
  Sex: Male
  Weight: 92.8 kg

DRUGS (4)
  1. FLUOROURACIL [Suspect]
     Active Substance: FLUOROURACIL
  2. IRINOTECAN (CPT11, CAMPTOSAR) [Concomitant]
  3. LEUCOVORIN CALCIUM [Concomitant]
  4. ELOXATIN [Concomitant]
     Active Substance: OXALIPLATIN

REACTIONS (7)
  - Infusion related reaction [None]
  - Flushing [None]
  - Hyperhidrosis [None]
  - Pruritus [None]
  - Erythema [None]
  - Dyspnoea [None]
  - Therapy cessation [None]

NARRATIVE: CASE EVENT DATE: 20240219
